FAERS Safety Report 7996463-5 (Version None)
Quarter: 2011Q4

REPORT INFORMATION
  Report Type: 
  Country: None (occurrence: None)
  Receive Date: 20111220
  Receipt Date: 20110518
  Transmission Date: 20120403
  Serious: Yes (Death, Hospitalization)
  Sender: FDA-Public Use
  Company Number: PHEH2010US00589

PATIENT
  Sex: Male
  Weight: 86 kg

DRUGS (18)
  1. PREDNISONE TAB [Suspect]
  2. IRON [Concomitant]
  3. DIGOXIN [Concomitant]
  4. METOPROLOL TARTRATE [Concomitant]
  5. VANCOCIN HYDROCHLORIDE [Concomitant]
  6. SERTRALINE HYDROCHLORIDE [Concomitant]
  7. GLEEVEC [Suspect]
     Indication: ACUTE MYELOID LEUKAEMIA
     Dosage: 400 MG, QD
     Route: 048
     Dates: start: 20091021
  8. WARFARIN SODIUM [Concomitant]
  9. MAGNESIUM [Concomitant]
  10. VITAMIN B COMPLEX CAP [Concomitant]
  11. ACIDOPHILUS [Concomitant]
  12. VITAMIN C [Concomitant]
  13. SENNA [Concomitant]
  14. KLOR-CON [Concomitant]
  15. GABAPENTIN [Concomitant]
  16. CALCIUM [Concomitant]
  17. IPRATROPIUM BROMIDE [Concomitant]
  18. M.V.I. [Concomitant]

REACTIONS (5)
  - CHRONIC OBSTRUCTIVE PULMONARY DISEASE [None]
  - SWELLING FACE [None]
  - CARDIAC FAILURE CONGESTIVE [None]
  - OEDEMA PERIPHERAL [None]
  - EYE SWELLING [None]
